FAERS Safety Report 4976646-9 (Version None)
Quarter: 2006Q2

REPORT INFORMATION
  Report Type: 
  Country: None (occurrence: None)
  Receive Date: 20060419
  Receipt Date: 20051003
  Transmission Date: 20061013
  Serious: Yes (Hospitalization, Other)
  Sender: FDA-Public Use
  Company Number: US-MERCK-0510USA02861

PATIENT
  Age: 48 Year
  Sex: Male
  Weight: 95 kg

DRUGS (1)
  1. VIOXX [Suspect]
     Indication: PAIN
     Route: 048
     Dates: start: 20000101, end: 20030101

REACTIONS (6)
  - CARDIAC DISORDER [None]
  - FALL [None]
  - FRACTURE [None]
  - MYOCARDIAL INFARCTION [None]
  - NECK INJURY [None]
  - ROAD TRAFFIC ACCIDENT [None]
